FAERS Safety Report 16943135 (Version 2)
Quarter: 2020Q2

REPORT INFORMATION
  Report Type: Report from Study
  Country: None (occurrence: NL)
  Receive Date: 20191021
  Receipt Date: 20200421
  Transmission Date: 20200713
  Serious: Yes (Hospitalization)
  Sender: FDA-Public Use
  Company Number: NL-ABBVIE-18S-114-2513324-00

PATIENT
  Sex: Male
  Weight: 122 kg

DRUGS (7)
  1. DUODOPA [Suspect]
     Active Substance: CARBIDOPA\LEVODOPA
     Dosage: MD: 12.0 CD: 3.9 ED: 2.5 ?NIGHT DOSE: 2.0 EXTRA NIGHT DOSE: 2.5
     Route: 050
  2. PRAMIPEXOLE. [Concomitant]
     Active Substance: PRAMIPEXOLE
     Indication: PARKINSON^S DISEASE
     Route: 048
  3. GABAPENTINE [Concomitant]
     Active Substance: GABAPENTIN
     Indication: SLEEP DISORDER THERAPY
  4. DUODOPA [Suspect]
     Active Substance: CARBIDOPA\LEVODOPA
     Dosage: MD 12 CD 4.1 ED 2.5 CND 2 END 2.5
     Route: 050
  5. MOVICOLON [Concomitant]
     Active Substance: POLYETHYLENE GLYCOL 3350\POTASSIUM CHLORIDE\SODIUM BICARBONATE\SODIUM CHLORIDE
     Indication: ABNORMAL FAECES
     Dates: start: 201809
  6. AMITRIPTYLINE [Concomitant]
     Active Substance: AMITRIPTYLINE
     Indication: SLEEP DISORDER THERAPY
  7. DUODOPA [Suspect]
     Active Substance: CARBIDOPA\LEVODOPA
     Indication: PARKINSON^S DISEASE
     Dosage: MD: 14.0ML, CD: 3.1ML, ED: 2.0ML?USE OF PUMP: 16 HOURS A DAY, FROM 7:30 AM TO 22:30 PM.
     Route: 050
     Dates: start: 20170716

REACTIONS (21)
  - Nocturia [Recovering/Resolving]
  - Depressed mood [Not Recovered/Not Resolved]
  - Emotional disorder [Not Recovered/Not Resolved]
  - Fatigue [Not Recovered/Not Resolved]
  - Gait disturbance [Not Recovered/Not Resolved]
  - Sluggishness [Not Recovered/Not Resolved]
  - Dyskinesia [Recovered/Resolved]
  - Unevaluable event [Not Recovered/Not Resolved]
  - Disturbance in attention [Not Recovered/Not Resolved]
  - Abnormal dreams [Not Recovered/Not Resolved]
  - Psychiatric symptom [Not Recovered/Not Resolved]
  - Mobility decreased [Recovering/Resolving]
  - Weight decreased [Unknown]
  - On and off phenomenon [Not Recovered/Not Resolved]
  - Emotional distress [Not Recovered/Not Resolved]
  - Muscle rigidity [Recovering/Resolving]
  - Anxiety [Not Recovered/Not Resolved]
  - Memory impairment [Not Recovered/Not Resolved]
  - Posture abnormal [Not Recovered/Not Resolved]
  - Agitation [Not Recovered/Not Resolved]
  - Hallucination [Recovered/Resolved]
